FAERS Safety Report 13614146 (Version 1)
Quarter: 2017Q2

REPORT INFORMATION
  Report Type: Report from Study
  Country: MX (occurrence: MX)
  Receive Date: 20170606
  Receipt Date: 20170606
  Transmission Date: 20170830
  Serious: Yes (Death)
  Sender: FDA-Public Use
  Company Number: PHHY2017MX082954

PATIENT
  Sex: Male

DRUGS (3)
  1. EXFORGE HCT [Suspect]
     Active Substance: AMLODIPINE BESYLATE\HYDROCHLOROTHIAZIDE\VALSARTAN
     Indication: DIABETES MELLITUS
     Dosage: 1 DF (AMLODIPINE 10 MG/ HYDROCHLOROTHIAZIDE 25 MG/ VALSARTAN 320 MG), QD
     Route: 065
  2. DIFENIDOL [Concomitant]
     Indication: PRODUCT USED FOR UNKNOWN INDICATION
     Route: 065
  3. IRESSA [Concomitant]
     Active Substance: GEFITINIB
     Indication: PRODUCT USED FOR UNKNOWN INDICATION
     Route: 065

REACTIONS (2)
  - Death [Fatal]
  - Product use in unapproved indication [Recovered/Resolved]
